FAERS Safety Report 7637181-2 (Version None)
Quarter: 2011Q3

REPORT INFORMATION
  Report Type: 
  Country: None (occurrence: None)
  Receive Date: 20110726
  Receipt Date: 20110711
  Transmission Date: 20111222
  Serious: Yes (Death)
  Sender: FDA-Public Use
  Company Number: PHHY2010JP84159

PATIENT
  Sex: Male
  Weight: 50 kg

DRUGS (1)
  1. EXJADE [Suspect]
     Indication: MYELODYSPLASTIC SYNDROME
     Dosage: 1000 MG, QD
     Route: 048
     Dates: start: 20090622

REACTIONS (4)
  - PNEUMONIA [None]
  - NEOPLASM PROGRESSION [None]
  - INTERSTITIAL LUNG DISEASE [None]
  - NEOPLASM MALIGNANT [None]
